FAERS Safety Report 13307078 (Version 1)
Quarter: 2017Q1

REPORT INFORMATION
  Report Type: Spontaneous
  Country: CA (occurrence: CA)
  Receive Date: 20170308
  Receipt Date: 20170308
  Transmission Date: 20170428
  Serious: Yes (Hospitalization, Other)
  Sender: FDA-Public Use
  Company Number: CA-ASTRAZENECA-2017SE22106

PATIENT
  Age: 24 Year
  Sex: Male
  Weight: 52.2 kg

DRUGS (10)
  1. EFFEXOR [Suspect]
     Active Substance: VENLAFAXINE HYDROCHLORIDE
     Route: 065
  2. SEROQUEL [Suspect]
     Active Substance: QUETIAPINE FUMARATE
     Route: 048
  3. DILTIAZEM. [Concomitant]
     Active Substance: DILTIAZEM
     Dosage: TWO TIMES A DAY/THREE TIMES A DAY
  4. IMURAN [Concomitant]
     Active Substance: AZATHIOPRINE
     Dosage: 100.0MG UNKNOWN
     Dates: end: 20161108
  5. IMURAN [Concomitant]
     Active Substance: AZATHIOPRINE
     Dosage: 50.0MG UNKNOWN
     Dates: start: 20161108
  6. GAVISCON [Concomitant]
     Active Substance: ALUMINUM HYDROXIDE\MAGNESIUM CARBONATE
  7. MARIJUANA [Concomitant]
     Active Substance: CANNABIS SATIVA SUBSP. INDICA TOP
     Dosage: DAILY
  8. PREDNISONE. [Concomitant]
     Active Substance: PREDNISONE
     Route: 048
     Dates: start: 20170215
  9. PREDNISONE. [Concomitant]
     Active Substance: PREDNISONE
     Route: 048
  10. CLONAZEPAM. [Concomitant]
     Active Substance: CLONAZEPAM

REACTIONS (10)
  - Agitation [Unknown]
  - Crohn^s disease [Unknown]
  - Gallbladder polyp [Unknown]
  - Rectal fissure [Unknown]
  - Chest pain [Unknown]
  - Odynophagia [Recovering/Resolving]
  - Poor quality sleep [Unknown]
  - Cough [Unknown]
  - Drug withdrawal syndrome [Unknown]
  - Anal incontinence [Unknown]

NARRATIVE: CASE EVENT DATE: 201603
